FAERS Safety Report 6642119-0 (Version None)
Quarter: 2010Q1

REPORT INFORMATION
  Report Type: 
  Country: None (occurrence: None)
  Receive Date: 20100319
  Receipt Date: 20100309
  Transmission Date: 20100710
  Serious: Yes (Hospitalization)
  Sender: FDA-Public Use
  Company Number: CO-ELI_LILLY_AND_COMPANY-CO201003001656

PATIENT
  Age: 59 Year
  Sex: Female
  Weight: 72 kg

DRUGS (12)
  1. BYETTA [Suspect]
     Indication: TYPE 2 DIABETES MELLITUS
     Dosage: 5 UG, 2/D
     Route: 058
     Dates: start: 20100122, end: 20100201
  2. BYETTA [Suspect]
     Dosage: 10 UG, 2/D
     Route: 058
     Dates: start: 20100223, end: 20100302
  3. BYETTA [Suspect]
     Dosage: UNK, UNKNOWN
     Route: 065
     Dates: start: 20100306
  4. METFORMIN HCL [Concomitant]
     Dosage: UNK, UNKNOWN
     Route: 065
  5. VALSARTAN [Concomitant]
     Dosage: UNK, UNKNOWN
     Route: 065
  6. METOPROLOL TARTRATE [Concomitant]
     Dosage: UNK, UNKNOWN
     Route: 065
  7. ASPIRIN [Concomitant]
     Dosage: UNK, UNKNOWN
     Route: 065
  8. ATORVASTATIN CALCIUM [Concomitant]
     Dosage: UNK, UNKNOWN
     Route: 065
  9. COUMADIN [Concomitant]
     Dosage: UNK, UNKNOWN
     Route: 065
  10. NIFEDIPINE [Concomitant]
     Dosage: UNK, UNKNOWN
     Route: 065
  11. LANTUS [Concomitant]
     Dosage: 25 IU, UNKNOWN
     Route: 065
  12. APIDRA [Concomitant]
     Dosage: 10 IU, DAILY (1/D)
     Route: 065

REACTIONS (1)
  - MYOCARDIAL INFARCTION [None]
